FAERS Safety Report 13549661 (Version 1)
Quarter: 2017Q2

REPORT INFORMATION
  Report Type: Report from Study
  Country: FR (occurrence: FR)
  Receive Date: 20170516
  Receipt Date: 20170516
  Transmission Date: 20170830
  Serious: Yes (Death)
  Sender: FDA-Public Use
  Company Number: FR-PFIZER INC-2017207470

PATIENT
  Age: 64 Year
  Sex: Female

DRUGS (3)
  1. LEVOTHYROX [Concomitant]
     Active Substance: LEVOTHYROXINE
     Indication: HYPOTHYROIDISM
  2. FULVESTRANT [Concomitant]
     Active Substance: FULVESTRANT
     Dosage: UNK
     Dates: start: 20161214
  3. PALBOCICLIB [Suspect]
     Active Substance: PALBOCICLIB
     Dosage: 125 MG, DAILY
     Dates: start: 20161214

REACTIONS (3)
  - Creatinine renal clearance decreased [Unknown]
  - Bone pain [Not Recovered/Not Resolved]
  - Death [Fatal]

NARRATIVE: CASE EVENT DATE: 20161214
